FAERS Safety Report 5989261-5 (Version None)
Quarter: 2008Q4

REPORT INFORMATION
  Report Type: 
  Country: None (occurrence: None)
  Receive Date: 20081205
  Receipt Date: 20081125
  Transmission Date: 20090506
  Serious: Yes (Hospitalization, Disabling)
  Sender: FDA-Public Use
  Company Number: ENTC2008-0371

PATIENT
  Age: 47 Year
  Sex: Female

DRUGS (8)
  1. STALEVO 100 [Suspect]
     Indication: PARKINSON'S DISEASE
     Dosage: 50MG/12.5MG/ 200MG X 3, ORAL
     Route: 048
     Dates: start: 20080301
  2. MODOPAR [Concomitant]
  3. TRIVASTAL [Concomitant]
  4. SOTALEX [Concomitant]
  5. LEVOTHYROX [Concomitant]
  6. MOTILIUM [Concomitant]
  7. NOVATREX [Concomitant]
  8. ORENCIA [Suspect]
     Indication: RHEUMATOID ARTHRITIS
     Dosage: 750 MG, QMO
     Dates: start: 20071101

REACTIONS (4)
  - ABASIA [None]
  - DRUG INTERACTION [None]
  - DYSKINESIA [None]
  - WHEELCHAIR USER [None]
